FAERS Safety Report 8237800-6 (Version None)
Quarter: 2012Q1

REPORT INFORMATION
  Report Type: 
  Country: None (occurrence: None)
  Receive Date: 20120327
  Receipt Date: 20120321
  Transmission Date: 20120608
  Serious: Yes (Death, Other)
  Sender: FDA-Public Use
  Company Number: US-BAYER-200934534NA

PATIENT
  Age: 80 Year
  Sex: Male
  Weight: 73 kg

DRUGS (38)
  1. HEPARIN [Concomitant]
     Dosage: 401 UNK, UNK
     Route: 042
     Dates: start: 20040323, end: 20040323
  2. PLATELETS [Concomitant]
     Dosage: 8.5 U, UNK
  3. CISATRACURIUM BESYLATE [Concomitant]
     Dosage: 27 MG/H, UNK
     Route: 042
     Dates: start: 20040323, end: 20040323
  4. LOPRESSOR [Concomitant]
     Dosage: 12.5 MG, EVERY 8 HOURS
     Route: 048
     Dates: start: 20040309
  5. ASPIRIN [Concomitant]
     Dosage: 325 MG, QD
     Route: 048
     Dates: start: 20040309, end: 20040315
  6. INTEGRILIN [Concomitant]
  7. LIPITOR [Concomitant]
     Dosage: 20 MG, QD
     Route: 048
  8. FRESH FROZEN PLASMA [Concomitant]
     Dosage: 4 U, UNK
  9. MIDAZOLAM [Concomitant]
     Dosage: 5 MG, UNK
     Route: 042
     Dates: start: 20040323, end: 20040323
  10. NOREPINEPHRINE BITARTRATE [Concomitant]
     Dosage: UNK
     Dates: start: 20040323, end: 20040323
  11. DOPAMINE HCL [Concomitant]
     Dosage: 250 MG, UNK
     Route: 042
     Dates: start: 20040323, end: 20040323
  12. LEVOPHED [Concomitant]
     Route: 042
  13. LASIX [Concomitant]
     Dosage: 20 MG, BID
     Dates: start: 20040404
  14. RED BLOOD CELLS [Concomitant]
     Dosage: 6 U, UNK
  15. VANCOMYCIN [Concomitant]
     Dosage: 1000 MG, UNK
     Route: 042
     Dates: start: 20040310, end: 20040311
  16. PROTAMINE SULFATE [Concomitant]
     Dosage: 500 MG, UNK
     Route: 042
     Dates: start: 20040323, end: 20040323
  17. ISORDIL [Concomitant]
     Dosage: 5 MG, TID
  18. FOLATE SODIUM [Concomitant]
     Dosage: 1 MG, QD
     Route: 048
  19. NIMBEX [Concomitant]
     Dosage: UNK
     Dates: start: 20040323
  20. ISOFLURANE [Concomitant]
     Dosage: UNK
     Dates: start: 20040323
  21. VANCOMYCIN [Concomitant]
     Dosage: 1000 MG, UNK
     Route: 042
     Dates: start: 20040323, end: 20040323
  22. PREDNISONE TAB [Concomitant]
     Dosage: 50 MG, EVERY 8 HOURS
     Route: 048
     Dates: start: 20040310
  23. ATIVAN [Concomitant]
     Dosage: 1 MG, UNK
     Route: 042
     Dates: start: 20040322
  24. FENTANYL [Concomitant]
     Dosage: UNK
     Dates: start: 20040323
  25. PROPOFOL [Concomitant]
  26. TRASYLOL [Suspect]
     Indication: CORONARY ARTERY BYPASS
     Dosage: 10000 KIU, UNK
     Route: 042
     Dates: start: 20040323, end: 20040323
  27. ATENOLOL [Concomitant]
  28. PLAVIX [Concomitant]
     Dosage: 75 MG, QD
     Route: 048
     Dates: start: 20040310, end: 20040314
  29. MORPHINE [Concomitant]
     Dosage: 2 MG, UNK
     Route: 042
     Dates: start: 20040309
  30. INSULIN [Concomitant]
     Dosage: UNK
     Dates: start: 20040323
  31. EPHEDRINE [Concomitant]
     Dosage: 20 MG, UNK
     Route: 042
     Dates: start: 20040323, end: 20040323
  32. LIDOCAINE [Concomitant]
     Dosage: 100 MG, UNK
     Route: 042
     Dates: start: 20040323, end: 20040323
  33. AGGRASTAT [Concomitant]
     Dosage: UNK
     Dates: start: 20040309
  34. NEXIUM [Concomitant]
     Dosage: 40 MG, BID
     Route: 048
  35. CAPTOPRIL [Concomitant]
     Dosage: 12.5 MG, TID
     Route: 048
     Dates: start: 20040311
  36. TRASYLOL [Suspect]
     Indication: MITRAL VALVE REPAIR
     Dosage: 500000 U, BOLUS (TOTAL: 2,931,805 U)
     Dates: start: 20040323, end: 20040323
  37. PAPAVERINE [Concomitant]
     Dosage: 120 MG, UNK
     Route: 061
  38. ZOFRAN [Concomitant]

REACTIONS (12)
  - MULTI-ORGAN FAILURE [None]
  - DEATH [None]
  - RENAL IMPAIRMENT [None]
  - RENAL INJURY [None]
  - RENAL FAILURE [None]
  - EMOTIONAL DISTRESS [None]
  - UNEVALUABLE EVENT [None]
  - ANXIETY [None]
  - PAIN [None]
  - STRESS [None]
  - INJURY [None]
  - FEAR [None]
